FAERS Safety Report 10640945 (Version 1)
Quarter: 2014Q4

REPORT INFORMATION
  Report Type: Spontaneous
  Country: DE (occurrence: DE)
  Receive Date: 20141209
  Receipt Date: 20141209
  Transmission Date: 20150529
  Serious: Yes (Other)
  Sender: FDA-Public Use
  Company Number: DE-SA-2014SA165653

PATIENT

DRUGS (1)
  1. MULTAQ [Suspect]
     Active Substance: DRONEDARONE
     Indication: ATRIAL FIBRILLATION
     Route: 065

REACTIONS (5)
  - Cardiovascular disorder [Unknown]
  - Vomiting [Unknown]
  - Atrial fibrillation [Recovered/Resolved]
  - Condition aggravated [Unknown]
  - Nausea [Unknown]
